FAERS Safety Report 23086912 (Version 1)
Quarter: 2023Q4

REPORT INFORMATION
  Report Type: Spontaneous
  Country: BE (occurrence: BE)
  Receive Date: 20231020
  Receipt Date: 20231020
  Transmission Date: 20240110
  Serious: Yes (Hospitalization, Other)
  Sender: FDA-Public Use
  Company Number: BE-IHL-000388

PATIENT
  Age: 49 Year
  Sex: Female

DRUGS (4)
  1. OLMESARTAN MEDOXOMIL [Suspect]
     Active Substance: OLMESARTAN MEDOXOMIL
     Indication: Product use issue
     Route: 065
  2. LEVOTHYROXINE [Concomitant]
     Active Substance: LEVOTHYROXINE
     Indication: Product used for unknown indication
     Route: 065
  3. BISOPROLOL [Concomitant]
     Active Substance: BISOPROLOL\BISOPROLOL FUMARATE
     Indication: Product used for unknown indication
     Route: 065
  4. PANTOPRAZOLE [Concomitant]
     Active Substance: PANTOPRAZOLE
     Indication: Product used for unknown indication
     Route: 065

REACTIONS (10)
  - Colitis microscopic [Unknown]
  - Hypokalaemia [Unknown]
  - Acute kidney injury [Unknown]
  - Cholestasis [Unknown]
  - Oesophagitis [Unknown]
  - Dolichocolon [Unknown]
  - Haemorrhoids [Unknown]
  - Duodenitis [Unknown]
  - Chronic gastritis [Unknown]
  - Enteritis [Unknown]
